FAERS Safety Report 16101759 (Version 2)
Quarter: 2019Q2

REPORT INFORMATION
  Report Type: Spontaneous
  Country: ES (occurrence: ES)
  Receive Date: 20190321
  Receipt Date: 20190401
  Transmission Date: 20190711
  Serious: Yes (Other)
  Sender: FDA-Public Use
  Company Number: ES-JNJFOC-20190234202

PATIENT
  Age: 54 Year
  Sex: Male
  Weight: 108 kg

DRUGS (8)
  1. ESOMEPRAZOLE. [Concomitant]
     Active Substance: ESOMEPRAZOLE MAGNESIUM
     Indication: ABDOMINAL PAIN UPPER
     Route: 048
  2. SIMPONI [Suspect]
     Active Substance: GOLIMUMAB
     Indication: ANKYLOSING SPONDYLITIS
     Route: 058
     Dates: start: 20160303, end: 201804
  3. ACTEYLSALICYLIC ACID [Concomitant]
     Indication: HYPERTENSION
     Route: 065
  4. SIMPONI [Suspect]
     Active Substance: GOLIMUMAB
     Indication: ANKYLOSING SPONDYLITIS
     Route: 058
     Dates: end: 20180901
  5. CAPENON [Concomitant]
     Active Substance: AMLODIPINE BESYLATE\OLMESARTAN MEDOXOMIL
     Indication: HYPERTENSION
     Route: 065
  6. BISOPROLOL [Concomitant]
     Active Substance: BISOPROLOL
     Indication: HYPERTENSION
     Route: 048
  7. DICLOFENAC [Concomitant]
     Active Substance: DICLOFENAC
  8. IBUPROFEN. [Concomitant]
     Active Substance: IBUPROFEN

REACTIONS (8)
  - Inflammation [Unknown]
  - Epiglottic oedema [Recovered/Resolved]
  - Granuloma [Recovering/Resolving]
  - Ankylosing spondylitis [Recovered/Resolved]
  - Salivary gland neoplasm [Unknown]
  - Drug ineffective [Unknown]
  - Soft tissue neoplasm [Unknown]
  - Tongue oedema [Recovered/Resolved]

NARRATIVE: CASE EVENT DATE: 2018
